FAERS Safety Report 9587860 (Version 1)
Quarter: 2013Q4

REPORT INFORMATION
  Report Type: Spontaneous
  Country: GB (occurrence: GB)
  Receive Date: 20131003
  Receipt Date: 20131003
  Transmission Date: 20140711
  Serious: Yes (Other)
  Sender: FDA-Public Use
  Company Number: GB-ACTAVIS-2013-17490

PATIENT
  Age: 82 Year
  Sex: Male

DRUGS (5)
  1. SPIRONOLACTONE (UNKNOWN) [Suspect]
     Indication: HYPERTENSION
     Dosage: 25 MG, DAILY
     Route: 065
     Dates: start: 20100619, end: 20100629
  2. INSULIN [Concomitant]
     Indication: DIABETES MELLITUS
     Dosage: 38 IU/DAY; 22IU IN THE MORNING AND 16IU AT NIGHT
     Route: 065
  3. CANDESARTAN [Concomitant]
     Indication: PRODUCT USED FOR UNKNOWN INDICATION
     Dosage: UNK, STOPPED A FEW WEEKS BEFORE SPIRONOLACTONE
     Route: 065
  4. FRUSEMIDE                          /00032601/ [Concomitant]
     Indication: PRODUCT USED FOR UNKNOWN INDICATION
     Dosage: UNK, OCCASIONALLY TAKEN
     Route: 065
  5. NASEPTIN [Concomitant]
     Indication: NASAL DRYNESS
     Dosage: UNK
     Route: 065

REACTIONS (18)
  - Diabetes mellitus [Unknown]
  - Muscular weakness [Recovering/Resolving]
  - Swelling [Recovering/Resolving]
  - Abdominal discomfort [Recovering/Resolving]
  - Gingival pain [Recovering/Resolving]
  - Glossodynia [Recovering/Resolving]
  - Hypoaesthesia [Recovering/Resolving]
  - Headache [Recovering/Resolving]
  - Visual impairment [Not Recovered/Not Resolved]
  - Weight increased [Recovering/Resolving]
  - Waist circumference increased [Recovering/Resolving]
  - Fall [Recovering/Resolving]
  - Lip swelling [Recovering/Resolving]
  - Cough [Unknown]
  - Hiatus hernia [Unknown]
  - Body height decreased [Unknown]
  - Vision blurred [Recovering/Resolving]
  - Eye disorder [Unknown]
